FAERS Safety Report 24720679 (Version 1)
Quarter: 2024Q4

REPORT INFORMATION
  Report Type: Spontaneous
  Country: JP (occurrence: JP)
  Receive Date: 20241211
  Receipt Date: 20241211
  Transmission Date: 20250114
  Serious: Yes (Other)
  Sender: MERZ
  Company Number: JP-teijin-202404677_XE_P_1

PATIENT

DRUGS (1)
  1. XEOMIN [Suspect]
     Active Substance: INCOBOTULINUMTOXINA
     Indication: Hypertonic bladder
     Route: 043

REACTIONS (2)
  - Intra-abdominal haemorrhage [Unknown]
  - Off label use [Unknown]
